FAERS Safety Report 14416042 (Version 1)
Quarter: 2018Q1

REPORT INFORMATION
  Report Type: Spontaneous
  Country: MY (occurrence: MY)
  Receive Date: 20180122
  Receipt Date: 20180122
  Transmission Date: 20180509
  Serious: Yes (Life-Threatening)
  Sender: FDA-Public Use
  Company Number: MY-ACCORD-062785

PATIENT
  Age: 45 Year
  Sex: Male

DRUGS (2)
  1. ITRACONAZOLE. [Suspect]
     Active Substance: ITRACONAZOLE
     Indication: PENICILLIUM INFECTION
     Dosage: ALTERNATELY FOR ABOUT THREE WEEKS
     Route: 048
  2. ITRACONAZOLE. [Suspect]
     Active Substance: ITRACONAZOLE
     Indication: PENICILLIUM INFECTION
     Dosage: ALTERNATELY FOR ABOUT THREE WEEKS
     Route: 048

REACTIONS (1)
  - Treatment failure [Unknown]
